FAERS Safety Report 23691533 (Version 1)
Quarter: 2024Q2

REPORT INFORMATION
  Report Type: Spontaneous
  Country: US (occurrence: US)
  Receive Date: 20240401
  Receipt Date: 20240401
  Transmission Date: 20240716
  Serious: Yes (Other)
  Sender: FDA-Public Use
  Company Number: US-HIKMA PHARMACEUTICALS-US-H14001-24-02550

PATIENT
  Sex: Female

DRUGS (3)
  1. AMIKACIN [Suspect]
     Active Substance: AMIKACIN
     Indication: Spinal cord infection
     Dosage: UNKNOWN
     Route: 065
     Dates: end: 202311
  2. AMIKACIN [Suspect]
     Active Substance: AMIKACIN
     Indication: Extradural abscess
  3. AMIKACIN [Suspect]
     Active Substance: AMIKACIN
     Indication: Psoas abscess

REACTIONS (2)
  - Fanconi syndrome [Unknown]
  - Infection [Unknown]

NARRATIVE: CASE EVENT DATE: 20231101
